FAERS Safety Report 16055747 (Version 1)
Quarter: 2019Q1

REPORT INFORMATION
  Report Type: Report from Study
  Country: US (occurrence: US)
  Receive Date: 20190311
  Receipt Date: 20190311
  Transmission Date: 20190418
  Serious: No
  Sender: FDA-Public Use
  Company Number: PHEH2019US009990

PATIENT
  Age: 59 Year
  Sex: Female

DRUGS (1)
  1. COSENTYX [Suspect]
     Active Substance: SECUKINUMAB
     Indication: PSORIASIS
     Dosage: 300 MG, QW
     Route: 058
     Dates: start: 20190206

REACTIONS (6)
  - Injection site bruising [Unknown]
  - Incorrect dose administered [Unknown]
  - Injection site mass [Unknown]
  - Product storage error [Unknown]
  - Injection site pain [Unknown]
  - Injection site haematoma [Unknown]
